FAERS Safety Report 5363089-1 (Version None)
Quarter: 2007Q2

REPORT INFORMATION
  Report Type: 
  Country: None (occurrence: None)
  Receive Date: 20070615
  Receipt Date: 20070602
  Transmission Date: 20071010
  Serious: Yes (Other)
  Sender: FDA-Public Use
  Company Number: 2007EU001206

PATIENT
  Age: 49 Year
  Sex: Female

DRUGS (7)
  1. PROGRAF [Suspect]
     Indication: RENAL TRANSPLANT
     Dosage: SEE IMAGE
     Route: 048
     Dates: start: 20061101
  2. PREDNISOLONE [Concomitant]
  3. ATENOLOL [Concomitant]
  4. FOLIC ACID [Concomitant]
  5. COZAAR [Concomitant]
  6. NITROCONTIN (GLYCERYL TRINITRATE) [Concomitant]
  7. ROCALTROL [Concomitant]

REACTIONS (6)
  - ALOPECIA [None]
  - CEREBROVASCULAR ACCIDENT [None]
  - LEUKOPENIA [None]
  - OEDEMA PERIPHERAL [None]
  - SKIN HAEMORRHAGE [None]
  - THROMBOCYTOPENIA [None]
